FAERS Safety Report 8283225-7 (Version None)
Quarter: 2012Q2

REPORT INFORMATION
  Report Type: 
  Country: None (occurrence: None)
  Receive Date: 20120413
  Receipt Date: 20120403
  Transmission Date: 20120825
  Serious: Yes (Hospitalization, Disabling, Other)
  Sender: FDA-Public Use
  Company Number: US-MERCK-1109USA01183

PATIENT
  Age: 55 Year
  Sex: Female

DRUGS (2)
  1. ALENDRONATE SODIUM [Suspect]
     Indication: OSTEOPOROSIS
     Route: 048
     Dates: start: 20100501
  2. FOSAMAX [Suspect]
     Indication: OSTEOPOROSIS
     Route: 048
     Dates: start: 20010401

REACTIONS (46)
  - INTERVERTEBRAL DISC PROTRUSION [None]
  - GASTROOESOPHAGEAL REFLUX DISEASE [None]
  - FEMUR FRACTURE [None]
  - FRACTURE NONUNION [None]
  - ANXIETY [None]
  - RADIUS FRACTURE [None]
  - HYPERLIPIDAEMIA [None]
  - OSTEOPOROSIS [None]
  - RADICULOPATHY [None]
  - ARTHRALGIA [None]
  - ACROCHORDON [None]
  - TEMPERATURE INTOLERANCE [None]
  - GASTRITIS [None]
  - LOW TURNOVER OSTEOPATHY [None]
  - SPONDYLOLISTHESIS [None]
  - ABDOMINAL PAIN [None]
  - HYPERTENSION [None]
  - OSTEOARTHRITIS [None]
  - ABDOMINAL PAIN UPPER [None]
  - ANAEMIA POSTOPERATIVE [None]
  - TEMPOROMANDIBULAR JOINT SYNDROME [None]
  - GASTROINTESTINAL DISORDER [None]
  - FATIGUE [None]
  - NAUSEA [None]
  - SPINAL OSTEOARTHRITIS [None]
  - BACK PAIN [None]
  - IRRITABLE BOWEL SYNDROME [None]
  - ASTHENIA [None]
  - DECREASED APPETITE [None]
  - FOOT FRACTURE [None]
  - GALLBLADDER DISORDER [None]
  - STRESS FRACTURE [None]
  - SINUS HEADACHE [None]
  - GASTROENTERITIS VIRAL [None]
  - URINARY RETENTION [None]
  - CYST [None]
  - FALL [None]
  - HEART RATE IRREGULAR [None]
  - MYALGIA [None]
  - CONTUSION [None]
  - IMPAIRED HEALING [None]
  - COLITIS [None]
  - DEPRESSION [None]
  - MUSCLE STRAIN [None]
  - FACET JOINT SYNDROME [None]
  - INTERVERTEBRAL DISC DEGENERATION [None]
